FAERS Safety Report 19620463 (Version 3)
Quarter: 2021Q4

REPORT INFORMATION
  Report Type: Report from Study
  Country: JP (occurrence: JP)
  Receive Date: 20210728
  Receipt Date: 20211112
  Transmission Date: 20220303
  Serious: Yes (Hospitalization)
  Sender: FDA-Public Use
  Company Number: JP-CHUGAI-C2021004730ROCHE

PATIENT
  Age: 75 Year
  Sex: Female
  Weight: 42 kg

DRUGS (18)
  1. BEVACIZUMAB [Suspect]
     Active Substance: BEVACIZUMAB
     Indication: Lung adenocarcinoma
     Dosage: DOSE: 574 MG
     Route: 041
     Dates: start: 20190516, end: 20200717
  2. BEVACIZUMAB [Suspect]
     Active Substance: BEVACIZUMAB
     Route: 041
     Dates: start: 20200605, end: 20201211
  3. BEVACIZUMAB [Suspect]
     Active Substance: BEVACIZUMAB
     Route: 041
     Dates: start: 20200918, end: 20200918
  4. BEVACIZUMAB [Suspect]
     Active Substance: BEVACIZUMAB
     Route: 041
     Dates: start: 20201211, end: 20201211
  5. ERLOTINIB [Suspect]
     Active Substance: ERLOTINIB
     Indication: Lung adenocarcinoma
     Dosage: 150 MILLIGRAM, QD
     Route: 048
     Dates: start: 20210518, end: 20210702
  6. ATEZOLIZUMAB [Suspect]
     Active Substance: ATEZOLIZUMAB
     Indication: Lung adenocarcinoma
     Route: 041
     Dates: start: 20190516, end: 20210129
  7. PEMETREXED DISODIUM [Suspect]
     Active Substance: PEMETREXED DISODIUM
     Indication: Lung adenocarcinoma
     Dosage: DOSE: 630 MG
     Route: 041
     Dates: start: 20190516, end: 20210129
  8. PEMETREXED DISODIUM [Suspect]
     Active Substance: PEMETREXED DISODIUM
     Dosage: DOSE: 655 MG
     Route: 041
     Dates: start: 20200605, end: 20210129
  9. CARBOPLATIN [Suspect]
     Active Substance: CARBOPLATIN
     Indication: Lung adenocarcinoma
     Dosage: AUC 5 (DAY 1) DIV
     Route: 041
     Dates: start: 20190516, end: 20190719
  10. AMLODIPINE BESYLATE\IRBESARTAN [Concomitant]
     Active Substance: AMLODIPINE BESYLATE\IRBESARTAN
     Indication: Hypertension
     Dosage: BEGINNING OF DOSAGE DAY: TRIAL BEGINNING FORMER
     Route: 048
  11. CALCIUM CARBONATE\CHOLECALCIFEROL\MAGNESIUM CARBONATE [Concomitant]
     Active Substance: CALCIUM CARBONATE\CHOLECALCIFEROL\MAGNESIUM CARBONATE
     Indication: Hypocalcaemia
     Dosage: BEGINNING OF DOSAGE DAY: TRIAL BEGINNING FORMER
     Route: 048
  12. DENOSUMAB [Concomitant]
     Active Substance: DENOSUMAB
     Indication: Lung adenocarcinoma
     Dosage: BEGINNING OF DOSAGE DAY: TRIAL BEGINNING FORMER
     Route: 058
  13. NEXIUM [Concomitant]
     Active Substance: ESOMEPRAZOLE MAGNESIUM
     Indication: Prophylaxis against gastrointestinal ulcer
     Dosage: BEGINNING OF DOSAGE DAY: TRIAL BEGINNING FORMER
     Route: 048
  14. AZUNOL [Concomitant]
     Indication: Oral pain
     Dosage: PROPER QUANTITY AND BEGINNING OF DOSAGE DAY: TRIAL BEGINNING FORMER
  15. SODIUM GUALENATE MONOHYDRATE [Concomitant]
     Active Substance: SODIUM GUALENATE MONOHYDRATE
     Indication: Infection prophylaxis
     Dosage: ...PROPER QUANTITY.. PROPERLY, BEGINNING OF DOSAGE DAY: TRIAL BEGINNING FORMER
  16. SULFAMETHOXAZOLE\TRIMETHOPRIM [Concomitant]
     Active Substance: SULFAMETHOXAZOLE\TRIMETHOPRIM
     Indication: Prophylaxis
     Route: 048
     Dates: start: 20210319
  17. GLYCOSAMINOGLYCANS [Concomitant]
     Active Substance: GLYCOSAMINOGLYCANS
     Indication: Skin disorder prophylaxis
  18. ATORVASTATIN [Concomitant]
     Active Substance: ATORVASTATIN

REACTIONS (4)
  - Blood creatinine increased [Recovering/Resolving]
  - Colitis ulcerative [Recovering/Resolving]
  - Gastric ulcer haemorrhage [Unknown]
  - Small intestinal haemorrhage [Unknown]

NARRATIVE: CASE EVENT DATE: 20210129
